FAERS Safety Report 9391978 (Version 2)
Quarter: 2013Q3

REPORT INFORMATION
  Report Type: Spontaneous
  Country: US (occurrence: US)
  Receive Date: 20130709
  Receipt Date: 20130731
  Transmission Date: 20140515
  Serious: No
  Sender: FDA-Public Use
  Company Number: US-009507513-1307USA004623

PATIENT
  Age: 64 Year
  Sex: Female
  Weight: 48.73 kg

DRUGS (5)
  1. MIRALAX [Suspect]
     Indication: CONSTIPATION PROPHYLAXIS
     Dosage: 17 G, QD
     Route: 048
     Dates: start: 201006
  2. MIRALAX [Suspect]
     Indication: MEDICAL OBSERVATION
  3. INDOMETHACIN [Concomitant]
     Indication: ARTHRITIS
     Dosage: UNK, UNKNOWN
  4. LIALDA [Concomitant]
     Indication: IRRITABLE BOWEL SYNDROME
     Dosage: UNK, UNKNOWN
  5. ZYRTEC [Concomitant]
     Indication: HYPERSENSITIVITY
     Dosage: UNK, UNKNOWN

REACTIONS (3)
  - Abdominal distension [Recovered/Resolved]
  - Constipation [Recovered/Resolved]
  - Incorrect drug administration duration [Unknown]
